FAERS Safety Report 11456210 (Version 1)
Quarter: 2015Q3

REPORT INFORMATION
  Report Type: Spontaneous
  Country: CN (occurrence: CN)
  Receive Date: 20150903
  Receipt Date: 20150903
  Transmission Date: 20151125
  Serious: Yes (Death)
  Sender: FDA-Public Use
  Company Number: CN-BAYER-2015-407704

PATIENT

DRUGS (1)
  1. AVELOX [Suspect]
     Active Substance: MOXIFLOXACIN HYDROCHLORIDE
     Dosage: UNK
     Route: 042
     Dates: start: 201508, end: 201508

REACTIONS (3)
  - Headache [None]
  - Completed suicide [Fatal]
  - Tremor [Recovering/Resolving]

NARRATIVE: CASE EVENT DATE: 201508
